FAERS Safety Report 6755530-4 (Version None)
Quarter: 2010Q2

REPORT INFORMATION
  Report Type: 
  Country: None (occurrence: None)
  Receive Date: 20100602
  Receipt Date: 20081003
  Transmission Date: 20101027
  Serious: Yes (Other)
  Sender: FDA-Public Use
  Company Number: 2010SP028959

PATIENT
  Sex: Female

DRUGS (1)
  1. DESOGESTREL/ETHINYL ESTRADIOL [Suspect]
     Indication: CONTRACEPTION
     Dosage: ;PO
     Route: 048
     Dates: start: 20080101

REACTIONS (3)
  - CHROMATURIA [None]
  - OCULAR ICTERUS [None]
  - YELLOW SKIN [None]
